FAERS Safety Report 18299930 (Version 1)
Quarter: 2020Q3

REPORT INFORMATION
  Report Type: Spontaneous
  Country: ES (occurrence: ES)
  Receive Date: 20200923
  Receipt Date: 20200923
  Transmission Date: 20201103
  Serious: Yes (Other)
  Sender: FDA-Public Use
  Company Number: ES-AUROBINDO-AUR-APL-2020-049059

PATIENT
  Age: 42 Year
  Sex: Female
  Weight: 80 kg

DRUGS (2)
  1. TRIAMCINOLONE [Suspect]
     Active Substance: TRIAMCINOLONE
     Indication: PLANTAR FASCIITIS
     Dosage: 40 MILLIGRAM, 1 TOTAL
     Route: 030
     Dates: start: 20200707
  2. BUPIVACAINE. [Suspect]
     Active Substance: BUPIVACAINE
     Indication: PLANTAR FASCIITIS
     Dosage: 2 MILLILITER
     Route: 030
     Dates: start: 20200709

REACTIONS (1)
  - Thermal burn [Recovered/Resolved]

NARRATIVE: CASE EVENT DATE: 20200709
